FAERS Safety Report 6575248-0 (Version None)
Quarter: 2010Q1

REPORT INFORMATION
  Report Type: 
  Country: None (occurrence: None)
  Receive Date: 20100209
  Receipt Date: 20080724
  Transmission Date: 20100710
  Serious: Yes (Hospitalization)
  Sender: FDA-Public Use
  Company Number: PL-ROCHE-565880

PATIENT
  Sex: Female
  Weight: 89 kg

DRUGS (3)
  1. BEVACIZUMAB [Suspect]
     Dosage: DOSAGE FORM: VIAL
     Route: 042
     Dates: start: 20080131, end: 20080401
  2. BEVACIZUMAB [Suspect]
     Dosage: DOSAGE FORM: VIAL
     Route: 042
     Dates: start: 20080410
  3. AMLOZEK [Concomitant]

REACTIONS (3)
  - BLOOD CHOLESTEROL INCREASED [None]
  - BLOOD TRIGLYCERIDES INCREASED [None]
  - PERIPHERAL ISCHAEMIA [None]
